FAERS Safety Report 15814117 (Version 1)
Quarter: 2019Q1

REPORT INFORMATION
  Report Type: Spontaneous
  Country: DK (occurrence: DK)
  Receive Date: 20190111
  Receipt Date: 20190111
  Transmission Date: 20190417
  Serious: Yes (Hospitalization)
  Sender: FDA-Public Use
  Company Number: DK-PFIZER INC-2019013394

PATIENT
  Age: 81 Year
  Sex: Female

DRUGS (12)
  1. DIGOXIN. [Concomitant]
     Active Substance: DIGOXIN
     Indication: HEART RATE IRREGULAR
     Dosage: 62.5 UG, 1X/DAY
     Route: 048
     Dates: start: 20160905
  2. PANTOPRAZOLE [Suspect]
     Active Substance: PANTOPRAZOLE
     Indication: GASTROOESOPHAGEAL REFLUX DISEASE
     Dosage: 20 MG, 1X/DAY
     Route: 048
     Dates: start: 20181111, end: 20181128
  3. ALLOPURINOL. [Concomitant]
     Active Substance: ALLOPURINOL
     Indication: GOUT
     Dosage: 100 MG, 2X/DAY
     Route: 048
     Dates: start: 20170621
  4. SELEXID [PIVMECILLINAM HYDROCHLORIDE] [Suspect]
     Active Substance: PIVMECILLINAM HYDROCHLORIDE
     Indication: URINARY TRACT INFECTION
     Dosage: 1200 MG, 1X/DAY
     Route: 048
     Dates: start: 20181109, end: 20181127
  5. PARACETAMOL [Concomitant]
     Active Substance: ACETAMINOPHEN
     Indication: PAIN
     Dosage: 1000 MG, UNK
     Route: 048
     Dates: start: 20170611
  6. BISACODYL. [Concomitant]
     Active Substance: BISACODYL
     Indication: CONSTIPATION
     Dosage: 10 MG, UNK
     Route: 048
     Dates: start: 20181121
  7. GAVISCON [ALGINIC ACID;ALUMINIUM HYDROXIDE GEL, DRIED;MAGNESIUM TRISIL [Concomitant]
     Indication: GASTROOESOPHAGEAL REFLUX DISEASE
     Dosage: 20 ML, UNK
     Route: 048
     Dates: start: 20181111, end: 20181204
  8. KALIUMCHLORID [Concomitant]
     Active Substance: POTASSIUM CHLORIDE
     Indication: MINERAL SUPPLEMENTATION
     Dosage: 750 MG, 1X/DAY
     Route: 048
     Dates: start: 20170120, end: 20181218
  9. METOPROLOL. [Concomitant]
     Active Substance: METOPROLOL
     Indication: HEART RATE IRREGULAR
     Dosage: 50 MG, 1X/DAY
     Route: 048
     Dates: start: 20161227, end: 20181122
  10. FUROSEMIDE. [Concomitant]
     Active Substance: FUROSEMIDE
     Indication: DIURETIC THERAPY
     Dosage: 40 MG, 1X/DAY
     Route: 048
     Dates: start: 20181117
  11. LACTULOSE. [Concomitant]
     Active Substance: LACTULOSE
     Indication: CONSTIPATION
     Dosage: 15 ML, UNK
     Route: 048
     Dates: start: 20161222
  12. UNIKALK MED D-VITAMIN [Concomitant]
     Indication: VITAMIN SUPPLEMENTATION
     Dosage: 800 MG, 1X/DAY
     Route: 048
     Dates: start: 20170621, end: 20171216

REACTIONS (3)
  - Tubulointerstitial nephritis [Recovering/Resolving]
  - Glomerular filtration rate decreased [Recovering/Resolving]
  - Blood creatinine increased [Recovering/Resolving]

NARRATIVE: CASE EVENT DATE: 2018
